FAERS Safety Report 4497472-3 (Version None)
Quarter: 2004Q4

REPORT INFORMATION
  Report Type: 
  Country: None (occurrence: None)
  Receive Date: 20041104
  Receipt Date: 20040823
  Transmission Date: 20050328
  Serious: Yes (Hospitalization)
  Sender: FDA-Public Use
  Company Number: ENTC2004-0161

PATIENT
  Age: 69 Year
  Sex: Male

DRUGS (1)
  1. STALEVO 100 [Suspect]
     Indication: PARKINSON'S DISEASE
     Dosage: 400 MG
     Route: 048
     Dates: start: 20040301, end: 20040618

REACTIONS (6)
  - CHILLS [None]
  - CHRONIC OBSTRUCTIVE AIRWAYS DISEASE [None]
  - MYELOID METAPLASIA [None]
  - MYOPATHY TOXIC [None]
  - OBSTRUCTIVE AIRWAYS DISORDER [None]
  - RHABDOMYOLYSIS [None]
